FAERS Safety Report 6049290-2 (Version None)
Quarter: 2009Q1

REPORT INFORMATION
  Report Type: 
  Country: None (occurrence: None)
  Receive Date: 20090123
  Receipt Date: 20090121
  Transmission Date: 20090719
  Serious: No
  Sender: FDA-Public Use
  Company Number: US-B.I. PHARMACEUTICALS,INC./RIDGEFIELD-2008-BP-17644BP

PATIENT
  Sex: Female
  Weight: 50 kg

DRUGS (22)
  1. SPIRIVA [Suspect]
     Indication: ASTHMA
     Dosage: 18MCG
     Dates: start: 20071001, end: 20080101
  2. ADVAIR DISKUS 100/50 [Concomitant]
     Indication: ASTHMA
     Dosage: 2PUF
     Dates: start: 20061016
  3. PROVENTIL-HFA [Concomitant]
     Indication: ASTHMA
     Dates: start: 20081209
  4. SINGULAIR [Concomitant]
     Indication: ASTHMA
     Dosage: 10MG
     Dates: start: 20050705
  5. ALLEGRA [Concomitant]
     Indication: ASTHMA
     Dates: start: 20040801
  6. NASONEX [Concomitant]
     Indication: ASTHMA
     Dosage: 50MCG
     Route: 045
     Dates: start: 20000101
  7. PREVACID [Concomitant]
     Indication: GASTROOESOPHAGEAL REFLUX DISEASE
     Dates: start: 20050701
  8. SYNTHROID [Concomitant]
     Indication: THYROID DISORDER
     Dosage: 125MCG
     Dates: start: 20051116
  9. CELEBREX [Concomitant]
     Dosage: 200MG
     Dates: start: 20051213
  10. DOCUSATE SODIUM [Concomitant]
     Dosage: 100MG
     Dates: start: 20081001
  11. TRIAMCINOLONE ACETONE CREAM [Concomitant]
     Indication: DERMATITIS
     Dates: start: 20041201
  12. ACTONEL [Concomitant]
     Indication: OSTEOPOROSIS
     Dates: start: 20050101
  13. MECLIZINE [Concomitant]
     Indication: VERTIGO
     Dates: start: 20051026
  14. FLAXSEED OIL [Concomitant]
     Indication: BLOOD CHOLESTEROL
     Dosage: 3600MG
     Dates: start: 20060101
  15. ASPIRIN [Concomitant]
  16. VITAMIN E [Concomitant]
     Dosage: 400MG
     Dates: start: 19990101
  17. CALCIUM, VIT. D [Concomitant]
     Indication: OSTEOPOROSIS
     Dosage: 1500MG
     Dates: start: 20031201
  18. VITAMIN C/ROSE HIPS [Concomitant]
     Dosage: 500MG
     Dates: start: 19970101
  19. THERA TEARS [Concomitant]
     Indication: SJOGREN'S SYNDROME
     Route: 047
     Dates: start: 19980101
  20. SALINE NASAL SPRAY [Concomitant]
     Route: 045
     Dates: start: 20010101
  21. FLEXERIL [Concomitant]
  22. ASMANEX TWISTHALER [Concomitant]

REACTIONS (4)
  - COUGH [None]
  - HYPERSENSITIVITY [None]
  - PRURITUS [None]
  - PULMONARY CONGESTION [None]
